FAERS Safety Report 6344559-6 (Version None)
Quarter: 2009Q3

REPORT INFORMATION
  Report Type: 
  Country: None (occurrence: None)
  Receive Date: 20090903
  Receipt Date: 20090817
  Transmission Date: 20100115
  Serious: Yes (Hospitalization, Other)
  Sender: FDA-Public Use
  Company Number: 2009-189399-NL

PATIENT
  Age: 23 Year
  Sex: Female
  Weight: 65.8 kg

DRUGS (2)
  1. NUVARING [Suspect]
     Indication: CONTRACEPTION
     Dates: start: 20060116, end: 20060301
  2. TYLENOL (CAPLET) [Concomitant]

REACTIONS (22)
  - ALPHA HAEMOLYTIC STREPTOCOCCAL INFECTION [None]
  - ANXIETY [None]
  - ATELECTASIS [None]
  - BACTERIA SPUTUM IDENTIFIED [None]
  - CENTRAL VENOUS PRESSURE INCREASED [None]
  - CYANOSIS [None]
  - DILATATION VENTRICULAR [None]
  - EJECTION FRACTION DECREASED [None]
  - FALL [None]
  - FEELING ABNORMAL [None]
  - LOSS OF CONSCIOUSNESS [None]
  - LYMPHADENOPATHY [None]
  - MUSCLE SPASMS [None]
  - PLEURAL EFFUSION [None]
  - PNEUMONIA [None]
  - PULMONARY EMBOLISM [None]
  - RIGHT ATRIAL DILATATION [None]
  - RIGHT VENTRICULAR FAILURE [None]
  - SINUS TACHYCARDIA [None]
  - STREPTOCOCCAL BACTERAEMIA [None]
  - TACHYCARDIA [None]
  - TACHYPNOEA [None]
